FAERS Safety Report 25621618 (Version 1)
Quarter: 2025Q3

REPORT INFORMATION
  Report Type: Spontaneous
  Country: GB (occurrence: GB)
  Receive Date: 20250730
  Receipt Date: 20250730
  Transmission Date: 20251020
  Serious: Yes (Other)
  Sender: REGENERON
  Company Number: GB-BAYER-2025A085876

PATIENT
  Age: 67 Year
  Sex: Female

DRUGS (3)
  1. EYLEA HD [Suspect]
     Active Substance: AFLIBERCEPT
     Indication: Diabetic retinal oedema
     Dates: start: 20240502
  2. EYLEA HD [Suspect]
     Active Substance: AFLIBERCEPT
     Dates: start: 20240531, end: 20240531
  3. EYLEA HD [Suspect]
     Active Substance: AFLIBERCEPT
     Dates: start: 20240531, end: 20240531

REACTIONS (7)
  - Blindness unilateral [Unknown]
  - Eye inflammation [Recovered/Resolved]
  - Lenticular opacities [Unknown]
  - Headache [Unknown]
  - Eye pain [Unknown]
  - Intraocular pressure increased [Unknown]
  - Anterior chamber cell [Unknown]

NARRATIVE: CASE EVENT DATE: 20240619
